FAERS Safety Report 10628161 (Version 1)
Quarter: 2014Q4

REPORT INFORMATION
  Report Type: Spontaneous
  Country: US (occurrence: US)
  Receive Date: 20141205
  Receipt Date: 20141205
  Transmission Date: 20150529
  Serious: No
  Sender: FDA-Public Use
  Company Number: US-BRISTOL-MYERS SQUIBB COMPANY-20889614

PATIENT
  Sex: Male

DRUGS (3)
  1. MORPHINE [Concomitant]
     Active Substance: MORPHINE
  2. ERBITUX [Suspect]
     Active Substance: CETUXIMAB
     Indication: SQUAMOUS CELL CARCINOMA
     Dosage: PREVIOUSLY ON NOVEMBER 2013. RECENT DOSE 27MAY2014.
     Route: 042
  3. CALCIUM [Concomitant]
     Active Substance: CALCIUM

REACTIONS (3)
  - Acne [Unknown]
  - Rash [Recovered/Resolved]
  - Skin ulcer [Unknown]

NARRATIVE: CASE EVENT DATE: 20140527
